FAERS Safety Report 8824281 (Version 2)
Quarter: 2012Q4

REPORT INFORMATION
  Report Type: 
  Country: US (occurrence: US)
  Receive Date: 20121004
  Receipt Date: 20121024
  Transmission Date: 20130627
  Serious: No
  Sender: FDA-Public Use
  Company Number: US-009507513-1210USA000336

PATIENT
  Sex: Female

DRUGS (7)
  1. NASONEX [Suspect]
     Indication: SINUS DISORDER
     Dosage: 2 DF, qd
     Route: 045
     Dates: start: 201204
  2. KLONOPIN [Concomitant]
  3. THORAZINE [Concomitant]
  4. AMBIEN [Concomitant]
  5. TEGRETOL [Concomitant]
  6. METFORMIN [Concomitant]
  7. VITAMINS (UNSPECIFIED) [Concomitant]

REACTIONS (2)
  - Medication error [Unknown]
  - Product quality issue [Unknown]
